FAERS Safety Report 6938247-2 (Version None)
Quarter: 2010Q3

REPORT INFORMATION
  Report Type: 
  Country: None (occurrence: None)
  Receive Date: 20100824
  Receipt Date: 20100317
  Transmission Date: 20110219
  Serious: No
  Sender: FDA-Public Use
  Company Number: A0850673A

PATIENT
  Age: 30 Year
  Sex: Female

DRUGS (2)
  1. MALARONE [Suspect]
     Indication: MALARIA PROPHYLAXIS
     Route: 048
     Dates: start: 20090701
  2. NO CONCURRENT MEDICATION [Concomitant]

REACTIONS (4)
  - CHILLS [None]
  - DRUG INEFFECTIVE [None]
  - MALARIA [None]
  - VOMITING [None]
